FAERS Safety Report 21140886 (Version 3)
Quarter: 2022Q4

REPORT INFORMATION
  Report Type: Spontaneous
  Country: IQ (occurrence: None)
  Receive Date: 20220728
  Receipt Date: 20221007
  Transmission Date: 20230113
  Serious: Yes (Other)
  Sender: FDA-Public Use
  Company Number: IQ-ROCHE-3148448

PATIENT
  Age: 53 Year
  Sex: Female
  Weight: 44 kg

DRUGS (6)
  1. MABTHERA [Suspect]
     Active Substance: RITUXIMAB
     Indication: Diffuse large B-cell lymphoma
     Dosage: 6 CYCLE, 1ST LINE TREATMENT
     Route: 041
     Dates: start: 20201101, end: 20210222
  2. MABTHERA [Suspect]
     Active Substance: RITUXIMAB
     Dosage: SHE RECEIVED 3 CYCLES OF MABTHERA
     Route: 041
     Dates: start: 20210113, end: 20211124
  3. CYCLOPHOSPHAMIDE\DOXORUBICIN\PREDNISONE\VINCRISTINE [Suspect]
     Active Substance: CYCLOPHOSPHAMIDE\DOXORUBICIN\PREDNISONE\VINCRISTINE
     Indication: Diffuse large B-cell lymphoma
     Dosage: 6 CYCLES, 1ST LINE TREATMENT
     Route: 065
     Dates: start: 20201101, end: 20210222
  4. IFOSFAMIDE [Suspect]
     Active Substance: IFOSFAMIDE
     Indication: Diffuse large B-cell lymphoma
     Dosage: 3 CYCLES, 2ND LINE TREATMENT:
     Route: 065
     Dates: start: 20210113, end: 20211124
  5. CARBOPLATIN [Suspect]
     Active Substance: CARBOPLATIN
     Indication: Diffuse large B-cell lymphoma
     Dosage: 3 CYCLES, 2ND LINE TREATMENT:
     Route: 065
     Dates: start: 20210113, end: 20211124
  6. ETOPOSIDE [Suspect]
     Active Substance: ETOPOSIDE
     Indication: Diffuse large B-cell lymphoma
     Dosage: 3 CYCLES, 2ND LINE TREATMENT:
     Route: 065
     Dates: start: 20210113, end: 20211124

REACTIONS (1)
  - Disease progression [Unknown]

NARRATIVE: CASE EVENT DATE: 20211101
